FAERS Safety Report 5048015-7 (Version None)
Quarter: 2006Q2

REPORT INFORMATION
  Report Type: 
  Country: None (occurrence: None)
  Receive Date: 20060601
  Receipt Date: 20060320
  Transmission Date: 20061013
  Serious: No
  Sender: FDA-Public Use
  Company Number: 2006PV010458

PATIENT
  Age: 54 Year
  Sex: Female
  Weight: 84.8226 kg

DRUGS (6)
  1. BYETTA [Suspect]
     Indication: DIABETES MELLITUS NON-INSULIN-DEPENDENT
     Dosage: SEE IMAGE, SC
     Route: 058
     Dates: start: 20060101, end: 20060131
  2. BYETTA [Suspect]
     Indication: DIABETES MELLITUS NON-INSULIN-DEPENDENT
     Dosage: SEE IMAGE, SC
     Route: 058
     Dates: start: 20060201
  3. GLUCOPHAGE [Concomitant]
  4. CHROMOGEN FORTE [Concomitant]
  5. AUGMENTIN [Concomitant]
  6. NIACIN [Concomitant]

REACTIONS (1)
  - BLOOD GLUCOSE INCREASED [None]
